FAERS Safety Report 23756832 (Version 4)
Quarter: 2024Q4

REPORT INFORMATION
  Report Type: Spontaneous
  Country: ES (occurrence: ES)
  Receive Date: 20240418
  Receipt Date: 20241016
  Transmission Date: 20250114
  Serious: Yes (Hospitalization)
  Sender: FRESENIUS KABI
  Company Number: ES-GILEAD-2024-0668376

PATIENT
  Sex: Male
  Weight: 81.6 kg

DRUGS (14)
  1. PEMETREXED DISODIUM [Suspect]
     Active Substance: PEMETREXED DISODIUM
     Indication: Non-small cell lung cancer metastatic
     Dosage: 1000 MG?FORM OF ADMINISTRATION: INJECTION
     Route: 042
     Dates: start: 20240318, end: 20240318
  2. PEMETREXED DISODIUM [Suspect]
     Active Substance: PEMETREXED DISODIUM
     Dosage: 1000 MG?FOA: INJECTION
     Route: 042
     Dates: start: 20230818, end: 20230818
  3. CARBOPLATIN [Suspect]
     Active Substance: CARBOPLATIN
     Indication: Non-small cell lung cancer metastatic
     Dosage: 720 MG?FORM OF ADMINISTRATION: INJECTION
     Route: 042
     Dates: start: 20230818, end: 20230818
  4. DOMVANALIMAB [Suspect]
     Active Substance: DOMVANALIMAB
     Indication: Non-small cell lung cancer metastatic
     Dosage: 1200 MG?FOA: SOLUTION FOR INFUSION
     Route: 042
     Dates: start: 20230818, end: 20230818
  5. DOMVANALIMAB [Suspect]
     Active Substance: DOMVANALIMAB
     Dosage: 1200 MG?FOA: SOLUTION FOR INFUSION
     Route: 042
     Dates: start: 20240318, end: 20240318
  6. ZIMBERELIMAB [Suspect]
     Active Substance: ZIMBERELIMAB
     Indication: Non-small cell lung cancer metastatic
     Dosage: 360 MG?FOA: SOLUTION FOR INFUSION
     Route: 042
     Dates: start: 20230818, end: 20230818
  7. ZIMBERELIMAB [Suspect]
     Active Substance: ZIMBERELIMAB
     Dosage: 360 MG?FOA: SOLUTION FOR INFUSION
     Route: 042
     Dates: start: 20240318, end: 20240318
  8. VITAMIN B12 [Concomitant]
     Active Substance: CYANOCOBALAMIN
     Indication: Product used for unknown indication
     Dosage: ROA: INTRAMUSCULAR USE
     Route: 030
     Dates: start: 20230821
  9. FUROSEMIDE ALTER [FUROSEMIDE] [Concomitant]
     Indication: Oedema peripheral
     Route: 065
     Dates: start: 20240318, end: 20240319
  10. CALCIUM CARBONATE\CHOLECALCIFEROL [Concomitant]
     Active Substance: CALCIUM CARBONATE\CHOLECALCIFEROL
     Indication: Prophylaxis
     Dosage: ROA: ORAL USE
     Route: 048
     Dates: start: 202308
  11. PREDNISONE [Concomitant]
     Active Substance: PREDNISONE
     Indication: Premedication
     Dosage: ROA: ORAL USE
     Route: 048
  12. DEXAMETHASONE [Concomitant]
     Active Substance: DEXAMETHASONE
     Indication: Premedication
     Dosage: ROA: INTRAVENOUS USE
     Route: 042
     Dates: start: 20240318, end: 20240318
  13. NICOTINE [Concomitant]
     Active Substance: NICOTINE
     Indication: Product used for unknown indication
     Dosage: ROA: CUTANEOUS USE
     Route: 003
     Dates: start: 20230907
  14. FOLIC ACID [Concomitant]
     Active Substance: FOLIC ACID
     Indication: Product used for unknown indication
     Dosage: ROA: ORAL
     Dates: start: 20230814

REACTIONS (1)
  - Cellulitis [Recovered/Resolved]

NARRATIVE: CASE EVENT DATE: 20240404
